FAERS Safety Report 8283016-7 (Version None)
Quarter: 2012Q2

REPORT INFORMATION
  Report Type: 
  Country: None (occurrence: None)
  Receive Date: 20120413
  Receipt Date: 20120329
  Transmission Date: 20120825
  Serious: Yes (Hospitalization)
  Sender: FDA-Public Use
  Company Number: IT-ROCHE-1049291

PATIENT
  Sex: Female

DRUGS (4)
  1. VALIUM [Suspect]
     Indication: INTENTIONAL SELF-INJURY
     Route: 048
     Dates: start: 20120128, end: 20120128
  2. GABAPENTIN [Suspect]
     Indication: INTENTIONAL SELF-INJURY
     Route: 048
     Dates: start: 20120128, end: 20120128
  3. CLONAZEPAM [Suspect]
     Indication: INTENTIONAL SELF-INJURY
     Route: 048
     Dates: start: 20120128, end: 20120128
  4. VENLAFAXINE [Suspect]
     Indication: INTENTIONAL SELF-INJURY
     Dates: start: 20120128, end: 20120128

REACTIONS (3)
  - TACHYCARDIA [None]
  - SOPOR [None]
  - PSYCHOMOTOR HYPERACTIVITY [None]
